FAERS Safety Report 24252963 (Version 1)
Quarter: 2024Q3

REPORT INFORMATION
  Report Type: Spontaneous
  Country: US (occurrence: US)
  Receive Date: 20240827
  Receipt Date: 20240827
  Transmission Date: 20241016
  Serious: Yes (Hospitalization, Other)
  Sender: DR REDDYS
  Company Number: US-DRL-USA-SPO/USA/24/0012347

PATIENT
  Age: 67 Year
  Sex: Female

DRUGS (1)
  1. MELPHALAN [Suspect]
     Active Substance: MELPHALAN
     Indication: Primary amyloidosis

REACTIONS (3)
  - Upper gastrointestinal haemorrhage [Unknown]
  - Odynophagia [Unknown]
  - Product use in unapproved indication [Unknown]
